FAERS Safety Report 25273311 (Version 1)
Quarter: 2025Q2

REPORT INFORMATION
  Report Type: Spontaneous
  Country: US (occurrence: US)
  Receive Date: 20250506
  Receipt Date: 20250506
  Transmission Date: 20250716
  Serious: No
  Sender: AMNEAL
  Company Number: US-AMNEAL PHARMACEUTICALS-2024-AMRX-04023

PATIENT
  Sex: Female
  Weight: 24.898 kg

DRUGS (2)
  1. VIGABATRIN [Suspect]
     Active Substance: VIGABATRIN
     Indication: Epilepsy
     Dosage: (500 MG POWDER PACKETS) 30 MILLIGRAM, 2X/DAY
     Route: 048
  2. KEPPRA [Concomitant]
     Active Substance: LEVETIRACETAM
     Indication: Product used for unknown indication
     Route: 065

REACTIONS (2)
  - Crying [Unknown]
  - Depressed mood [Unknown]
